FAERS Safety Report 21348180 (Version 4)
Quarter: 2023Q1

REPORT INFORMATION
  Report Type: Report from Study
  Country: US (occurrence: US)
  Receive Date: 20220919
  Receipt Date: 20230220
  Transmission Date: 20230417
  Serious: Yes (Hospitalization, Other)
  Sender: FDA-Public Use
  Company Number: US-UCBSA-2022054823

PATIENT
  Age: 12 Year
  Sex: Male

DRUGS (3)
  1. FINTEPLA [Suspect]
     Active Substance: FENFLURAMINE
     Indication: Product used for unknown indication
     Dosage: 4 MILLILITER, 2X/DAY (BID)
  2. FINTEPLA [Suspect]
     Active Substance: FENFLURAMINE
     Dosage: 2.3 MILLILITER, 2X/DAY (BID)
     Dates: start: 202209
  3. FINTEPLA [Suspect]
     Active Substance: FENFLURAMINE
     Dosage: UNK
     Dates: end: 20221025

REACTIONS (4)
  - Mania [Not Recovered/Not Resolved]
  - Hospitalisation [Not Recovered/Not Resolved]
  - Aggression [Not Recovered/Not Resolved]
  - Mood altered [Not Recovered/Not Resolved]

NARRATIVE: CASE EVENT DATE: 20220910
